FAERS Safety Report 18697284 (Version 3)
Quarter: 2021Q1

REPORT INFORMATION
  Report Type: Spontaneous
  Country: US (occurrence: US)
  Receive Date: 20210105
  Receipt Date: 20210211
  Transmission Date: 20210419
  Serious: No
  Sender: FDA-Public Use
  Company Number: US-UNITED THERAPEUTICS-UNT-2020-020843

PATIENT
  Age: 64 Year
  Sex: Female

DRUGS (3)
  1. TYVASO [Suspect]
     Active Substance: TREPROSTINIL
     Dosage: 36 ?G, TID
     Dates: start: 20200823
  2. TYVASO [Suspect]
     Active Substance: TREPROSTINIL
     Indication: PULMONARY ARTERIAL HYPERTENSION
     Dosage: UNK
     Dates: start: 20200722
  3. TYVASO [Suspect]
     Active Substance: TREPROSTINIL
     Dosage: 42 ?G, TID
     Dates: start: 20200810

REACTIONS (5)
  - Inappropriate schedule of product administration [Unknown]
  - Treatment failure [Unknown]
  - Headache [Unknown]
  - Drug dose titration not performed [Unknown]
  - Heart rate increased [Unknown]

NARRATIVE: CASE EVENT DATE: 202008
